FAERS Safety Report 6215919-9 (Version None)
Quarter: 2009Q2

REPORT INFORMATION
  Report Type: 
  Country: None (occurrence: None)
  Receive Date: 20090605
  Receipt Date: 20090526
  Transmission Date: 20091009
  Serious: Yes (Life-Threatening)
  Sender: FDA-Public Use
  Company Number: PL-BAYER-200921767GPV

PATIENT
  Sex: Female
  Weight: 60 kg

DRUGS (1)
  1. ULTRAVIST 370 [Suspect]
     Indication: OESOPHAGEAL CARCINOMA
     Dosage: 100 ML THROUGH AUTOMATIC PUMP
     Route: 040

REACTIONS (2)
  - CARDIAC ARREST [None]
  - RESPIRATORY ARREST [None]
